FAERS Safety Report 25565235 (Version 2)
Quarter: 2025Q3

REPORT INFORMATION
  Report Type: Report from Study
  Country: AR (occurrence: AR)
  Receive Date: 20250716
  Receipt Date: 20250721
  Transmission Date: 20251020
  Serious: No
  Sender: TAKEDA
  Company Number: AR-TAKEDA-2025TUS063462

PATIENT
  Age: 37 Year
  Sex: Female

DRUGS (1)
  1. VEDOLIZUMAB [Suspect]
     Active Substance: VEDOLIZUMAB
     Indication: Colitis ulcerative
     Dosage: 300 MILLIGRAM, Q4WEEKS

REACTIONS (2)
  - Drug effect less than expected [Recovering/Resolving]
  - Amenorrhoea [Recovering/Resolving]

NARRATIVE: CASE EVENT DATE: 20241208
